FAERS Safety Report 6647650-X (Version None)
Quarter: 2010Q1

REPORT INFORMATION
  Report Type: 
  Country: None (occurrence: None)
  Receive Date: 20100323
  Receipt Date: 20100323
  Transmission Date: 20100710
  Serious: No
  Sender: FDA-Public Use
  Company Number: None

PATIENT
  Age: 71 Year
  Sex: Female
  Weight: 68.0396 kg

DRUGS (1)
  1. FOSAMAX [Suspect]

REACTIONS (3)
  - DYSPHAGIA [None]
  - LOWER LIMB FRACTURE [None]
  - OESOPHAGITIS [None]
